FAERS Safety Report 9912972 (Version 2)
Quarter: 2014Q2

REPORT INFORMATION
  Report Type: Spontaneous
  Country: IT (occurrence: None)
  Receive Date: 20140212
  Receipt Date: 20140404
  Transmission Date: 20141212
  Serious: Yes (Hospitalization)
  Sender: FDA-Public Use
  Company Number: IT-20140012

PATIENT
  Age: 54 Year
  Sex: Female

DRUGS (7)
  1. DOTAREM (GADOTERIC ACID) [Suspect]
     Indication: NUCLEAR MAGNETIC RESONANCE IMAGING
     Dosage: 12 ML, 1 IN 1 D (NOT OTHERWISE SPECIFIED)
     Route: 042
     Dates: start: 20140117, end: 20140117
  2. TACHIDOL (CODEINE PHOSPHATE, PARACETAMOL) (CODEINE PHOSPHATE, PARACETAMOL) [Concomitant]
  3. AVASTIN (BEVACIZUMAB) (BEVACIZUMAB) [Concomitant]
  4. LEDERFOLIN (CALCIUM FOLINATE) (CALCIUM FOLINATE) [Concomitant]
  5. PALEXIA (TAPONTADOL HYDROCHLORIDE) (TAPENTADOL HYDROCHLORIDE) [Concomitant]
  6. FLUOROURACIL (FLUOROURACIL) (FLOUROURACIL) [Concomitant]
  7. OXALIPLATIN (OXALIPLATIN) (OXALIPLATIN) [Concomitant]

REACTIONS (4)
  - Dyspnoea [None]
  - Erythema [None]
  - Malaise [None]
  - Vomiting [None]
